FAERS Safety Report 15675504 (Version 2)
Quarter: 2020Q4

REPORT INFORMATION
  Report Type: Spontaneous
  Country: DE (occurrence: DE)
  Receive Date: 20181130
  Receipt Date: 20201002
  Transmission Date: 20210113
  Serious: Yes (Hospitalization, Other)
  Sender: FDA-Public Use
  Company Number: DE-TEVA-2018-DE-980304

PATIENT
  Age: 7 Decade
  Sex: Male

DRUGS (24)
  1. COTRIMOXAZOL AL FORTE [Concomitant]
     Active Substance: SULFAMETHOXAZOLE\TRIMETHOPRIM
     Dates: start: 20170812
  2. AMLODIPIN FAIR-MED 5 MG [Concomitant]
     Dates: start: 20180227
  3. NITROLINGUAL [Concomitant]
     Active Substance: NITROGLYCERIN
     Dates: start: 20180322
  4. PANTOPRAZOL [Concomitant]
     Active Substance: PANTOPRAZOLE SODIUM
     Dosage: INTAKE CYCLICAL
     Route: 048
     Dates: start: 20150903
  5. VALSACOR 80 MG FILMTABLETTEN [Suspect]
     Active Substance: VALSARTAN
     Indication: HYPERTENSION
     Route: 048
     Dates: start: 20180710
  6. OPIPRAM 50 MG [Concomitant]
     Dates: start: 20170524
  7. MULTAQ [Concomitant]
     Active Substance: DRONEDARONE
     Dates: start: 20180116
  8. CILOXAN 3MG/ML [Concomitant]
     Dates: start: 20160713, end: 2016
  9. ASS 100 1 A PHARMA [Concomitant]
     Dates: start: 20170524
  10. PVP JOD SALBE [Concomitant]
     Dates: start: 20180508
  11. VALSARTAN ABZ 80 MG FILMTABLETTEN [Suspect]
     Active Substance: VALSARTAN
     Dosage: 160 MILLIGRAM DAILY;
     Route: 048
  12. VALSARTAN DURA 80 MG FILMTABLETTEN [Suspect]
     Active Substance: VALSARTAN
     Indication: HYPERTENSION
     Route: 048
     Dates: start: 20180810, end: 20180907
  13. ELIQUIS [Concomitant]
     Active Substance: APIXABAN
     Dates: start: 20180116
  14. ANAESTHESULF LOTION [Concomitant]
     Active Substance: POLIDOCANOL
     Dates: start: 20180426
  15. TRAUMEEL S [Concomitant]
     Active Substance: HOMEOPATHICS
     Dates: start: 20180508
  16. VALSARTAN ABZ 80 MG FILMTABLETTEN [Suspect]
     Active Substance: VALSARTAN
     Dosage: 240 MILLIGRAM DAILY;
     Route: 048
     Dates: start: 201712, end: 20180530
  17. RAMILICH COMP.2.5 MG/12.5 MG [Concomitant]
     Dates: start: 20150105
  18. TORASEMID HEXAL 5 MG [Concomitant]
     Dates: start: 20180202
  19. TILIDIN AL COMP 100 MG / 8 MG [Concomitant]
     Dates: start: 20180530
  20. BISOPROLOL 1A PHARMA [Concomitant]
     Active Substance: BISOPROLOL
     Dosage: INTAKE CYCLICAL
     Route: 048
     Dates: start: 20150105
  21. AMOXICLAV 875 MG/125 MG [Concomitant]
     Active Substance: AMOXICILLIN\CLAVULANIC ACID
     Dates: start: 20180130
  22. BERLOSIN [Concomitant]
     Active Substance: METAMIZOLE
     Dates: start: 20180426
  23. ACICLOSTAD 800 [Concomitant]
     Dates: start: 20180426
  24. VALSARTAN ABZ 80 MG FILMTABLETTEN [Suspect]
     Active Substance: VALSARTAN
     Indication: HYPERTENSION
     Dosage: 80 MILLIGRAM DAILY; START OF THERAPY WITH 1 TABLET DAILY, THEN INCREASED TO 2 TABLETS DAILY.
     Route: 048
     Dates: start: 20150805

REACTIONS (25)
  - Splenic marginal zone lymphoma stage IV [Unknown]
  - Cellulitis [Unknown]
  - Pinguecula [Unknown]
  - Mental disorder [Unknown]
  - Pain [Unknown]
  - Post herpetic neuralgia [Unknown]
  - Arrhythmia [Recovered/Resolved]
  - General physical health deterioration [Unknown]
  - Swelling [Unknown]
  - Squamous cell carcinoma [Unknown]
  - Cataract [Unknown]
  - Presbyopia [Unknown]
  - Herpes zoster [Unknown]
  - Gait disturbance [Unknown]
  - Atrial fibrillation [Recovered/Resolved]
  - Retinopathy hypertensive [Unknown]
  - Blepharochalasis [Unknown]
  - Pyrexia [Recovered/Resolved]
  - Product impurity [Unknown]
  - Erythema [Unknown]
  - Varicose vein [Unknown]
  - B-cell lymphoma [Unknown]
  - Immunodeficiency common variable [Unknown]
  - Lacrimation decreased [Unknown]
  - Peripheral venous disease [Unknown]

NARRATIVE: CASE EVENT DATE: 201707
